FAERS Safety Report 5657128-8 (Version None)
Quarter: 2008Q1

REPORT INFORMATION
  Report Type: 
  Country: None (occurrence: None)
  Receive Date: 20080310
  Receipt Date: 20080228
  Transmission Date: 20080703
  Serious: Yes (Death, Hospitalization)
  Sender: FDA-Public Use
  Company Number: NL-TEVA-168187ISR

PATIENT
  Age: 70 Year
  Sex: Female

DRUGS (1)
  1. TRAMADOL HCL [Suspect]
     Route: 048
     Dates: start: 20080101

REACTIONS (5)
  - COMA [None]
  - CONSTIPATION [None]
  - PNEUMONIA [None]
  - SOMNOLENCE [None]
  - VOMITING [None]
